FAERS Safety Report 20807511 (Version 1)
Quarter: 2022Q2

REPORT INFORMATION
  Report Type: Report from Study
  Country: AU (occurrence: AU)
  Receive Date: 20220510
  Receipt Date: 20220510
  Transmission Date: 20220721
  Serious: Yes (Other)
  Sender: FDA-Public Use
  Company Number: AU-BAYER-2022A063784

PATIENT
  Sex: Female

DRUGS (2)
  1. EYLEA [Suspect]
     Active Substance: AFLIBERCEPT
     Indication: Diabetic retinal oedema
     Dosage: UNK, TO BOTH EYES
     Route: 031
     Dates: start: 20210101
  2. EYLEA [Suspect]
     Active Substance: AFLIBERCEPT
     Dosage: UNK, TO BOTH EYES, LAST INJECTION
     Route: 031
     Dates: start: 20220428

REACTIONS (1)
  - Eye haemorrhage [Unknown]

NARRATIVE: CASE EVENT DATE: 20220428
